FAERS Safety Report 25989572 (Version 1)
Quarter: 2025Q4

REPORT INFORMATION
  Report Type: Spontaneous
  Country: US (occurrence: None)
  Receive Date: 20251031
  Receipt Date: 20251031
  Transmission Date: 20260117
  Serious: No
  Sender: FDA-CTU
  Company Number: None

PATIENT
  Age: 56 Year
  Sex: Female

DRUGS (17)
  1. FUROSCIX [Suspect]
     Active Substance: FUROSEMIDE
     Indication: Cardiac failure
     Dosage: OTHER FREQUENCY : WEEKLY;?
     Route: 058
  2. BUMETANIDE [Concomitant]
     Active Substance: BUMETANIDE
  3. ATORVASTATIN [Concomitant]
     Active Substance: ATORVASTATIN
  4. AMITRIPTYLINE [Concomitant]
     Active Substance: AMITRIPTYLINE
  5. ADVAIR HFA [Concomitant]
     Active Substance: FLUTICASONE PROPIONATE\SALMETEROL XINAFOATE
  6. ALBUTEROL [Concomitant]
     Active Substance: ALBUTEROL
  7. DULOXETINE [Concomitant]
     Active Substance: DULOXETINE
  8. ELIQUIS [Concomitant]
     Active Substance: APIXABAN
  9. ENTRESTO [Concomitant]
     Active Substance: SACUBITRIL\VALSARTAN
  10. GABAPENTIN [Concomitant]
     Active Substance: GABAPENTIN
  11. JARDIANCE [Concomitant]
     Active Substance: EMPAGLIFLOZIN
  12. METOPROLOL [Concomitant]
     Active Substance: METOPROLOL
  13. MIDODRINE [Concomitant]
     Active Substance: MIDODRINE
  14. NURTEC ODT [Concomitant]
     Active Substance: RIMEGEPANT SULFATE
  15. POTASSIUM [Concomitant]
     Active Substance: POTASSIUM
  16. PRAMIPEXOLE [Concomitant]
     Active Substance: PRAMIPEXOLE
  17. RANOLAZINE [Concomitant]
     Active Substance: RANOLAZINE

REACTIONS (3)
  - Renal failure [None]
  - Blood potassium decreased [None]
  - Blood sodium decreased [None]
